FAERS Safety Report 11238470 (Version 1)
Quarter: 2015Q3

REPORT INFORMATION
  Report Type: Spontaneous
  Country: GB (occurrence: GB)
  Receive Date: 20150705
  Receipt Date: 20150705
  Transmission Date: 20151125
  Serious: Yes (Other)
  Sender: FDA-Public Use
  Company Number: GB-TEVA-574888ACC

PATIENT
  Age: 80 Year

DRUGS (13)
  1. SIMVASTATIN. [Concomitant]
     Active Substance: SIMVASTATIN
  2. THIAMINE. [Concomitant]
     Active Substance: THIAMINE
  3. SENNA [Concomitant]
     Active Substance: SENNA LEAF\SENNOSIDES\SENNOSIDES A AND B
  4. DOCUSATE [Concomitant]
     Active Substance: DOCUSATE
  5. CLOPIDOGREL [Concomitant]
     Active Substance: CLOPIDOGREL BISULFATE
  6. FOLIC ACID. [Concomitant]
     Active Substance: FOLIC ACID
  7. CODEINE [Concomitant]
     Active Substance: CODEINE
  8. RISPERIDONE. [Suspect]
     Active Substance: RISPERIDONE
     Dosage: 500 MICROGRAM DAILY; TAKEN AT NIGHT.
  9. FLUDROCORTISONE [Concomitant]
     Active Substance: FLUDROCORTISONE
  10. MORPHINE HYDROCHLORIDE [Concomitant]
     Active Substance: MORPHINE HYDROCHLORIDE
     Dosage: 100MG/5ML
  11. SERTRALINE [Concomitant]
     Active Substance: SERTRALINE HYDROCHLORIDE
  12. VITAMIN B COMPOUND [Concomitant]
  13. PARACETAMOL [Concomitant]
     Active Substance: ACETAMINOPHEN

REACTIONS (1)
  - Aggression [Recovered/Resolved]
